FAERS Safety Report 7761888-X (Version None)
Quarter: 2011Q3

REPORT INFORMATION
  Report Type: 
  Country: None (occurrence: None)
  Receive Date: 20110920
  Receipt Date: 20110916
  Transmission Date: 20111222
  Serious: No
  Sender: FDA-Public Use
  Company Number: US-PFIZER INC-2011219723

PATIENT
  Sex: Male

DRUGS (1)
  1. SUTENT [Suspect]
     Dosage: 50 MG, 1X/DAY EVERY DAY FOR 28 DAYS THEN 14 DAYS OFF)
     Route: 048
     Dates: start: 20110805

REACTIONS (8)
  - PAIN [None]
  - COUGH [None]
  - BLOOD PRESSURE INCREASED [None]
  - HEADACHE [None]
  - CHEST DISCOMFORT [None]
  - DYSPNOEA [None]
  - RASH [None]
  - PYREXIA [None]
